FAERS Safety Report 12466970 (Version 2)
Quarter: 2016Q3

REPORT INFORMATION
  Report Type: Report from Study
  Country: US (occurrence: US)
  Receive Date: 20160615
  Receipt Date: 20160715
  Transmission Date: 20161109
  Serious: Yes (Death, Other)
  Sender: FDA-Public Use
  Company Number: PHEH2016US014632

PATIENT
  Age: 38 Year
  Sex: Male
  Weight: 104.3 kg

DRUGS (1)
  1. GLEEVEC [Suspect]
     Active Substance: IMATINIB MESYLATE
     Indication: CHRONIC MYELOID LEUKAEMIA
     Dosage: 100 MG, QID
     Route: 048
     Dates: start: 20141212

REACTIONS (5)
  - Loss of consciousness [Fatal]
  - White blood cell count increased [Unknown]
  - Cerebral haemorrhage [Fatal]
  - Chronic myeloid leukaemia [Fatal]
  - Platelet count decreased [Unknown]

NARRATIVE: CASE EVENT DATE: 20160420
